FAERS Safety Report 10109485 (Version 1)
Quarter: 2014Q2

REPORT INFORMATION
  Report Type: Spontaneous
  Country: US (occurrence: None)
  Receive Date: 20140424
  Receipt Date: 20140424
  Transmission Date: 20141212
  Serious: No
  Sender: FDA-Public Use
  Company Number: None

PATIENT
  Age: 26 Year
  Sex: Female
  Weight: 72.58 kg

DRUGS (1)
  1. ORTHO TRI-CYCLEN LO [Suspect]
     Indication: CONTRACEPTION
     Dosage: 1 PILL PER DAY ONCE DAILY
     Dates: start: 20140413, end: 20140418

REACTIONS (5)
  - Dizziness [None]
  - Nausea [None]
  - Headache [None]
  - Migraine [None]
  - Panic attack [None]
